FAERS Safety Report 7918906-5 (Version None)
Quarter: 2011Q4

REPORT INFORMATION
  Report Type: 
  Country: None (occurrence: None)
  Receive Date: 20111116
  Receipt Date: 20111111
  Transmission Date: 20120403
  Serious: Yes (Hospitalization)
  Sender: FDA-Public Use
  Company Number: PHEH2011US07266

PATIENT
  Sex: Male

DRUGS (3)
  1. BACLOFEN [Concomitant]
     Dosage: 1-2 DF, PER DAY
     Route: 048
  2. GILENYA [Suspect]
     Indication: MULTIPLE SCLEROSIS
     Dosage: 0.5 MG, QD
     Route: 048
     Dates: start: 20110818
  3. ZOLOFT [Concomitant]
     Dosage: 50 MG, QD
     Route: 048

REACTIONS (5)
  - PAIN IN EXTREMITY [None]
  - TRISMUS [None]
  - NECK PAIN [None]
  - PAIN IN JAW [None]
  - MUSCULOSKELETAL PAIN [None]
